FAERS Safety Report 5885271-7 (Version None)
Quarter: 2008Q3

REPORT INFORMATION
  Report Type: 
  Country: None (occurrence: None)
  Receive Date: 20080915
  Receipt Date: 20080915
  Transmission Date: 20090109
  Serious: No
  Sender: FDA-Public Use
  Company Number: None

PATIENT
  Age: 60 Year
  Sex: Female
  Weight: 72.5755 kg

DRUGS (1)
  1. BONIVA [Suspect]
     Indication: OSTEOPENIA
     Dosage: ONE TABLET ONCE A MONTH PO
     Route: 048
     Dates: start: 20080201, end: 20080501

REACTIONS (2)
  - ARTHRALGIA [None]
  - OSTEONECROSIS [None]
